FAERS Safety Report 13195705 (Version 1)
Quarter: 2017Q1

REPORT INFORMATION
  Report Type: Spontaneous
  Country: JP (occurrence: JP)
  Receive Date: 20170208
  Receipt Date: 20170208
  Transmission Date: 20170428
  Serious: Yes (Life-Threatening, Hospitalization, Other)
  Sender: FDA-Public Use
  Company Number: JP-AXELLIA-001046

PATIENT
  Age: 16 Month
  Sex: Female

DRUGS (4)
  1. VANCOMYCIN [Suspect]
     Active Substance: VANCOMYCIN
     Indication: MENINGITIS PNEUMOCOCCAL
     Dosage: VCM: 45 MG/KG/DAY ON DAY 45 OF ILLNESS
  2. MEROPENEM. [Suspect]
     Active Substance: MEROPENEM
     Indication: MENINGITIS PNEUMOCOCCAL
     Dosage: 140 MG/KG/DAY/4 DIVIDED DOSES,??MEPM WAS STOPPED.
  3. BETAMIPRON/PANIPENEM [Suspect]
     Active Substance: BETAMIPRON\PANIPENEM
     Indication: MENINGITIS PNEUMOCOCCAL
     Dosage: 110 MG/KG/DAY/3 DIVIDED DOSES ON DAY 40
  4. CEFTRIAXONE. [Suspect]
     Active Substance: CEFTRIAXONE
     Indication: MENINGITIS PNEUMOCOCCAL
     Dosage: 120 MG/KG/DAY/2 DIVIDED DOSES,??ON DAY 13 OF ILLNESS ADMINISTRATION OF CTRX WAS STOPPED.

REACTIONS (2)
  - Pyrexia [Unknown]
  - Drug ineffective [Unknown]
